FAERS Safety Report 6600444-3 (Version None)
Quarter: 2010Q1

REPORT INFORMATION
  Report Type: 
  Country: None (occurrence: None)
  Receive Date: 20100223
  Receipt Date: 20100223
  Transmission Date: 20100710
  Serious: Yes (Life-Threatening, Hospitalization)
  Sender: FDA-Public Use
  Company Number: None

PATIENT
  Age: 60 Year
  Sex: Female
  Weight: 77.1115 kg

DRUGS (2)
  1. FOSAMAX [Suspect]
     Indication: OSTEOPENIA
     Dosage: 70 MG 1 WEEKLY PO, 1999 UNTIL GENERIC
     Route: 048
     Dates: start: 19990101
  2. GENERIC ALENDRONATE 70 MG MYLAN PHARMACEUTICAL [Suspect]
     Indication: OSTEOPENIA
     Dosage: 70 MG 1 WEEKLY PO, WHEN FIRST AVAILABLE -3-09
     Route: 048
     Dates: start: 20090301

REACTIONS (2)
  - FEMUR FRACTURE [None]
  - SPINAL COMPRESSION FRACTURE [None]
